FAERS Safety Report 10516195 (Version 1)
Quarter: 2014Q3

REPORT INFORMATION
  Report Type: Spontaneous
  Country: US (occurrence: None)
  Receive Date: 20140926
  Receipt Date: 20140926
  Transmission Date: 20150326
  Serious: No
  Sender: FDA-Public Use
  Company Number: 1000069728

PATIENT
  Age: 60 Year
  Sex: Female

DRUGS (7)
  1. DILAUDID(HYDROMORPHONE HYDROCHLORIDE) [Concomitant]
  2. LINZESS [Suspect]
     Active Substance: LINACLOTIDE
     Indication: IRRITABLE BOWEL SYNDROME
     Route: 048
     Dates: start: 20140803, end: 20140804
  3. HYDROCORITSONE(HYDROCORTISONE) [Concomitant]
  4. INDERAL [Concomitant]
     Active Substance: PROPRANOLOL HYDROCHLORIDE
  5. ZANTAC [Concomitant]
     Active Substance: RANITIDINE HYDROCHLORIDE
  6. XANAX(ALPRAZOLAM) [Concomitant]
  7. PROTONIX(PANTOPRAZOLE SODIUM SESQUIHYDRATE) [Concomitant]

REACTIONS (4)
  - Diarrhoea [None]
  - Abdominal pain [None]
  - Flatulence [None]
  - Abdominal distension [None]

NARRATIVE: CASE EVENT DATE: 20140804
